FAERS Safety Report 20492465 (Version 2)
Quarter: 2022Q1

REPORT INFORMATION
  Report Type: Report from Study
  Country: US (occurrence: US)
  Receive Date: 20220219
  Receipt Date: 20220222
  Transmission Date: 20220423
  Serious: Yes (Hospitalization)
  Sender: FDA-Public Use
  Company Number: US-ABBVIE-22K-163-4273602-00

PATIENT
  Age: 70 Year
  Sex: Male
  Weight: 80.812 kg

DRUGS (6)
  1. DUOPA [Suspect]
     Active Substance: CARBIDOPA\LEVODOPA
     Indication: Product used for unknown indication
     Dosage: 100 MILLILITRE
     Route: 050
     Dates: start: 20190409
  2. DUOPA [Suspect]
     Active Substance: CARBIDOPA\LEVODOPA
  3. NORTHERA [Concomitant]
     Active Substance: DROXIDOPA
     Indication: Product used for unknown indication
     Route: 048
  4. PFIZER-BIONTECH COVID-19 VACCINE [Concomitant]
     Active Substance: TOZINAMERAN
     Indication: COVID-19 immunisation
     Dosage: 1ST DOSE
     Route: 030
     Dates: start: 202101, end: 202101
  5. PFIZER-BIONTECH COVID-19 VACCINE [Concomitant]
     Active Substance: TOZINAMERAN
     Dosage: 2ND DOSE
     Route: 030
     Dates: start: 202102, end: 202102
  6. PFIZER-BIONTECH COVID-19 VACCINE [Concomitant]
     Active Substance: TOZINAMERAN
     Dosage: 3RD DOSE
     Route: 030
     Dates: start: 202112, end: 202112

REACTIONS (4)
  - Urosepsis [Not Recovered/Not Resolved]
  - Hiccups [Unknown]
  - Benign prostatic hyperplasia [Not Recovered/Not Resolved]
  - Device issue [Unknown]

NARRATIVE: CASE EVENT DATE: 20220201
